FAERS Safety Report 17548403 (Version 1)
Quarter: 2020Q1

REPORT INFORMATION
  Report Type: Spontaneous
  Country: US (occurrence: US)
  Receive Date: 20200317
  Receipt Date: 20200317
  Transmission Date: 20200409
  Serious: Yes (Death, Hospitalization, Other)
  Sender: FDA-Public Use
  Company Number: US-DRREDDYS-USA/USA/20/0120689

PATIENT
  Age: 35 Year
  Sex: Male

DRUGS (3)
  1. FOMEPIZOLE. [Suspect]
     Active Substance: FOMEPIZOLE
     Indication: PRODUCT USED FOR UNKNOWN INDICATION
     Route: 065
  2. METHANOL [Suspect]
     Active Substance: METHYL ALCOHOL
     Indication: PRODUCT USED FOR UNKNOWN INDICATION
     Route: 065
  3. METOPROLOL SUCCINATE. [Suspect]
     Active Substance: METOPROLOL SUCCINATE
     Indication: PRODUCT USED FOR UNKNOWN INDICATION

REACTIONS (7)
  - Basal ganglia infarction [Unknown]
  - Diabetes insipidus [Unknown]
  - Completed suicide [Fatal]
  - Death [Fatal]
  - Brain oedema [Unknown]
  - Cerebrovascular insufficiency [Unknown]
  - Hypotension [Unknown]
